FAERS Safety Report 7138173-2 (Version None)
Quarter: 2010Q4

REPORT INFORMATION
  Report Type: 
  Country: None (occurrence: None)
  Receive Date: 20101118
  Receipt Date: 20101101
  Transmission Date: 20110411
  Serious: Yes (Hospitalization, Other)
  Sender: FDA-Public Use
  Company Number: 1-22842637

PATIENT
  Age: 75 Year
  Sex: Male

DRUGS (7)
  1. BLINDED STUDY DRUG (DU-176B OR WARFARIN) [Suspect]
     Indication: THROMBOSIS PROPHYLAXIS
     Dosage: ORAL
     Route: 048
     Dates: start: 20100405
  2. FRUSEMIDE [Concomitant]
  3. SPIRONOLACTONE [Concomitant]
  4. ECOSPRIN [Concomitant]
  5. DIGOXIN [Concomitant]
  6. RAMIPRIL [Concomitant]
  7. ATORVASTATIN [Concomitant]

REACTIONS (2)
  - INTERNATIONAL NORMALISED RATIO INCREASED [None]
  - OVERDOSE [None]
